FAERS Safety Report 12701495 (Version 1)
Quarter: 2016Q3

REPORT INFORMATION
  Report Type: Spontaneous
  Country: US (occurrence: US)
  Receive Date: 20160831
  Receipt Date: 20160831
  Transmission Date: 20161109
  Serious: No
  Sender: FDA-Public Use
  Company Number: US-PFIZER INC-2016407390

PATIENT
  Age: 67 Year
  Sex: Female
  Weight: 60.78 kg

DRUGS (1)
  1. IBRANCE [Suspect]
     Active Substance: PALBOCICLIB
     Indication: BREAST CANCER STAGE IV
     Dosage: 125 MG, ONCE A DAY; SUPPOSED TO TAKE IBRANCE FOR 21 DAYS THAN 7 DAYS OFF; CYCLIC

REACTIONS (4)
  - Poor quality drug administered [Unknown]
  - Drug dispensing error [Unknown]
  - Product container seal issue [Unknown]
  - White blood cell count decreased [Not Recovered/Not Resolved]
